FAERS Safety Report 7833829-8 (Version None)
Quarter: 2011Q4

REPORT INFORMATION
  Report Type: 
  Country: None (occurrence: None)
  Receive Date: 20111024
  Receipt Date: 20111019
  Transmission Date: 20120403
  Serious: Yes (Death, Hospitalization)
  Sender: FDA-Public Use
  Company Number: US-GLAXOSMITHKLINE-A0949717A

PATIENT
  Age: 88 Year
  Sex: Female

DRUGS (12)
  1. EXELON [Concomitant]
  2. NAMENDA [Concomitant]
  3. POTASSIUM CHLORIDE [Concomitant]
  4. PLAVIX [Concomitant]
  5. PROTONIX [Concomitant]
  6. NORVASC [Concomitant]
  7. FENOFIBRATE [Concomitant]
  8. VESICARE [Concomitant]
  9. LANOXIN [Suspect]
     Indication: PRODUCT USED FOR UNKNOWN INDICATION
     Dosage: .125MG UNKNOWN
     Route: 048
  10. ALPRAZOLAM [Concomitant]
  11. LEVETIRACETAM [Concomitant]
  12. PAXIL [Suspect]
     Route: 065

REACTIONS (3)
  - PNEUMONIA [None]
  - DEATH [None]
  - FALL [None]
